FAERS Safety Report 5019878-6 (Version None)
Quarter: 2006Q2

REPORT INFORMATION
  Report Type: 
  Country: None (occurrence: None)
  Receive Date: 20060607
  Receipt Date: 20060524
  Transmission Date: 20061013
  Serious: Yes (Hospitalization)
  Sender: FDA-Public Use
  Company Number: FR-AMGEN-UK180743

PATIENT
  Age: 79 Year
  Sex: Male

DRUGS (4)
  1. ARANESP [Suspect]
     Indication: ANAEMIA
     Route: 058
     Dates: start: 20060410, end: 20060410
  2. DEXAMETHASONE TAB [Concomitant]
     Route: 048
     Dates: start: 20060426
  3. DOXORUBICIN HYDROCHLORIDE [Concomitant]
     Route: 042
     Dates: start: 20060426, end: 20060426
  4. VINCRISTINE SULFATE [Concomitant]
     Route: 042
     Dates: start: 20060426, end: 20060426

REACTIONS (1)
  - DEEP VEIN THROMBOSIS [None]
